FAERS Safety Report 5500653-0 (Version None)
Quarter: 2007Q4

REPORT INFORMATION
  Report Type: 
  Country: None (occurrence: None)
  Receive Date: 20071029
  Receipt Date: 20071026
  Transmission Date: 20080405
  Serious: No
  Sender: FDA-Public Use
  Company Number: A0689449A

PATIENT
  Age: 53 Year
  Sex: Female

DRUGS (1)
  1. NICORETTE [Suspect]
     Indication: DRUG USE FOR UNKNOWN INDICATION
     Route: 002
     Dates: start: 20071021

REACTIONS (2)
  - DYSPEPSIA [None]
  - INTENTIONAL DRUG MISUSE [None]
